FAERS Safety Report 10481424 (Version 1)
Quarter: 2014Q3

REPORT INFORMATION
  Report Type: Spontaneous
  Country: US (occurrence: None)
  Receive Date: 20140908
  Receipt Date: 20140908
  Transmission Date: 20150326
  Serious: Yes (Other)
  Sender: FDA-Public Use
  Company Number: 383239

PATIENT
  Age: 61 Year
  Sex: Female
  Weight: 112 kg

DRUGS (7)
  1. VICTOZA [Suspect]
     Active Substance: LIRAGLUTIDE
     Indication: TYPE 2 DIABETES MELLITUS
     Route: 058
     Dates: start: 20130430, end: 20130712
  2. TOPROL XL [Concomitant]
     Active Substance: METOPROLOL SUCCINATE
  3. AMLODIPINE BENAZEPRIL(AMLODIPINE BESILATE, BENAZEPRIL HYDROCHLORIDE) [Concomitant]
  4. GLYBURIDE. [Concomitant]
     Active Substance: GLYBURIDE
  5. HYDROCHLOROTHIAZIDE(HYDROCHLOROTHIAZIDE) [Concomitant]
  6. ZOCOR [Concomitant]
     Active Substance: SIMVASTATIN
  7. PLAVIX(CLOPIDOGREL BISULFATE) [Concomitant]

REACTIONS (1)
  - Pancreatitis [None]

NARRATIVE: CASE EVENT DATE: 20130629
